FAERS Safety Report 15115080 (Version 1)
Quarter: 2018Q3

REPORT INFORMATION
  Report Type: Spontaneous
  Country: NL (occurrence: NL)
  Receive Date: 20180706
  Receipt Date: 20180706
  Transmission Date: 20181010
  Serious: Yes (Other)
  Sender: FDA-Public Use
  Company Number: NL-MYLANLABS-2018M1045434

PATIENT
  Age: 62 Year
  Sex: Female
  Weight: 80 kg

DRUGS (2)
  1. EFUDEX [Suspect]
     Active Substance: FLUOROURACIL
     Indication: ACTINIC KERATOSIS
     Dosage: 2 X DAAGS
     Dates: start: 20171221, end: 20180105
  2. EFUDEX [Suspect]
     Active Substance: FLUOROURACIL
     Indication: BOWEN^S DISEASE

REACTIONS (2)
  - Conjunctivitis bacterial [Recovering/Resolving]
  - Skin bacterial infection [Recovering/Resolving]

NARRATIVE: CASE EVENT DATE: 20180101
